FAERS Safety Report 7622518-0 (Version None)
Quarter: 2011Q3

REPORT INFORMATION
  Report Type: 
  Country: None (occurrence: None)
  Receive Date: 20110719
  Receipt Date: 20110719
  Transmission Date: 20111222
  Serious: Yes (Other)
  Sender: FDA-Public Use
  Company Number: None

PATIENT
  Age: 15 Year
  Sex: Male
  Weight: 73.0291 kg

DRUGS (1)
  1. CLINDAMYCIN [Suspect]
     Indication: TINNITUS
     Dosage: 1 CAPSULE 3X DAILY PO
     Route: 048
     Dates: start: 20110705, end: 20110714

REACTIONS (1)
  - TINNITUS [None]
